FAERS Safety Report 7662060 (Version 2)
Quarter: 2012Q4

REPORT INFORMATION
  Report Type: 
  Country: US (occurrence: US)
  Receive Date: 20101109
  Receipt Date: 20121017
  Transmission Date: 20130627
  Serious: Yes (Death)
  Sender: FDA-Public Use
  Company Number: US-MYLANLABS-2010S1019871

PATIENT
  Age: 49 Year
  Sex: Female
  Weight: 57.15 kg

DRUGS (18)
  1. PAROXETINE [Suspect]
  2. FENTANYL TRANSDERMAL SYSTEM [Suspect]
     Indication: NECK PAIN
     Dosage: q3days
     Route: 062
  3. FENTANYL TRANSDERMAL SYSTEM [Suspect]
     Indication: BACK PAIN
     Dosage: q3days
     Route: 062
  4. HYDROCODONE/APAP [Suspect]
     Indication: PAIN
  5. CARISOPRODOL [Suspect]
     Indication: NECK PAIN
  6. CARISOPRODOL [Suspect]
     Indication: BACK PAIN
  7. DIAZEPAM [Suspect]
  8. ENDOCET [Suspect]
     Indication: PAIN
  9. ACIPHEX [Concomitant]
  10. DITROPAN XL [Concomitant]
  11. LUNESTA [Concomitant]
  12. LITHIUM CARBONATE [Concomitant]
  13. LIPITOR [Concomitant]
  14. LIDODERM [Concomitant]
  15. NAPROXEN SODIUM [Concomitant]
  16. GLUCOSAMINE [Concomitant]
  17. CENTRUM [Concomitant]
  18. STOOL SOFTENER [Concomitant]

REACTIONS (8)
  - Completed suicide [Fatal]
  - Toxicity to various agents [Fatal]
  - Intentional overdose [None]
  - Toxicity to various agents [None]
  - Skin discolouration [None]
  - Respiratory arrest [None]
  - Cyanosis [None]
  - Pulse absent [None]
